FAERS Safety Report 25996725 (Version 1)
Quarter: 2025Q4

REPORT INFORMATION
  Report Type: Spontaneous
  Country: US (occurrence: US)
  Receive Date: 20251104
  Receipt Date: 20251104
  Transmission Date: 20260117
  Serious: No
  Sender: BAUSCH AND LOMB
  Company Number: US-BAUSCH-BH-2025-019329

PATIENT
  Age: 68 Year
  Sex: Female
  Weight: 86.18 kg

DRUGS (1)
  1. TRULANCE [Suspect]
     Active Substance: PLECANATIDE
     Indication: Irritable bowel syndrome
     Route: 065
     Dates: start: 20251012

REACTIONS (3)
  - Fatigue [Unknown]
  - Diarrhoea [Not Recovered/Not Resolved]
  - Rash [Unknown]

NARRATIVE: CASE EVENT DATE: 20251001
